FAERS Safety Report 11227440 (Version 5)
Quarter: 2015Q4

REPORT INFORMATION
  Report Type: Report from Study
  Country: US (occurrence: US)
  Receive Date: 20150630
  Receipt Date: 20151008
  Transmission Date: 20160304
  Serious: Yes (Death, Hospitalization, Other)
  Sender: FDA-Public Use
  Company Number: US-ALEXION-A201502379

PATIENT

DRUGS (1)
  1. SOLIRIS [Suspect]
     Active Substance: ECULIZUMAB
     Indication: HAEMOLYTIC URAEMIC SYNDROME
     Dosage: UNK
     Route: 042

REACTIONS (11)
  - Pneumonia viral [Unknown]
  - Dysphagia [Unknown]
  - Gingival disorder [Unknown]
  - Tooth loss [Unknown]
  - Azotaemia [Unknown]
  - Dyspnoea [Unknown]
  - Akinesia [Unknown]
  - Death [Fatal]
  - Pleural effusion [Unknown]
  - Incontinence [Unknown]
  - General physical health deterioration [Not Recovered/Not Resolved]

NARRATIVE: CASE EVENT DATE: 20150920
